FAERS Safety Report 10057290 (Version 1)
Quarter: 2014Q2

REPORT INFORMATION
  Report Type: Spontaneous
  Country: US (occurrence: US)
  Receive Date: 20140403
  Receipt Date: 20140403
  Transmission Date: 20141212
  Serious: Yes (Hospitalization)
  Sender: FDA-Public Use
  Company Number: US-B.I. PHARMACEUTICALS,INC./RIDGEFIELD-2014-BI-14521BP

PATIENT
  Age: 82 Year
  Sex: Male

DRUGS (12)
  1. COMBIVENT [Suspect]
     Indication: CHRONIC OBSTRUCTIVE PULMONARY DISEASE
     Dosage: STRENGTH: 18 MCG / 103 MCG; DAILY DOSE: 144 MCG/824 MCG
     Route: 055
     Dates: start: 2007, end: 201306
  2. COMBIVENT [Suspect]
     Indication: CHRONIC OBSTRUCTIVE PULMONARY DISEASE
     Dosage: STRENGTH: 20 MCG / 100 MCG; DAILY DOSE: 80 MCG/400 ,CG
     Route: 055
     Dates: start: 201307, end: 20140310
  3. NOVALOG INSULIN [Concomitant]
     Indication: DIABETES MELLITUS
     Dosage: FORMULATION: SUBCUTANEOUS STRENGTH: 26 UNITS; DAILY DOSE: 26 UNITS
     Route: 058
  4. NOVALOG INSULIN [Concomitant]
     Dosage: FORMULATION: SUBCUTANEOUS; STRENGTH: 10 UNITS; DAILY DOSE: 10 UNITS
     Route: 058
  5. GABAPENTIN [Concomitant]
     Route: 048
  6. ADVAIR [Concomitant]
     Indication: CHRONIC OBSTRUCTIVE PULMONARY DISEASE
     Dosage: 2 PUF
     Route: 055
  7. ALBUTEROL [Concomitant]
     Indication: CHRONIC OBSTRUCTIVE PULMONARY DISEASE
     Dosage: FORMULATION: INHALATION AEROSOL
     Route: 055
  8. ALBUTEROL NEBULIIZER [Concomitant]
     Indication: CHRONIC OBSTRUCTIVE PULMONARY DISEASE
     Dosage: FORMULATION: INHALATION SOLUTION
     Route: 055
  9. AMLODIPINE [Concomitant]
     Route: 048
  10. PLAVIX [Concomitant]
     Route: 048
  11. LOPRESSOR [Concomitant]
     Route: 048
  12. SIMVASTATIN [Concomitant]
     Route: 048

REACTIONS (3)
  - Chest pain [Recovered/Resolved]
  - Chronic obstructive pulmonary disease [Not Recovered/Not Resolved]
  - Oxygen saturation decreased [Unknown]
